FAERS Safety Report 4376156-6 (Version None)
Quarter: 2004Q2

REPORT INFORMATION
  Report Type: 
  Country: None (occurrence: None)
  Receive Date: 20040609
  Receipt Date: 20040609
  Transmission Date: 20050107
  Serious: Yes (Death, Hospitalization)
  Sender: FDA-Public Use
  Company Number: None

PATIENT
  Age: 68 Year
  Sex: Female
  Weight: 62 kg

DRUGS (9)
  1. ATENOLOL [Suspect]
     Indication: HYPERTENSION
     Dosage: 50 MG PO BID
     Route: 048
  2. VERELAN [Suspect]
     Indication: HYPERTENSION
     Dosage: 300 MG QD
     Dates: start: 20040325, end: 20040327
  3. TEQUIN [Concomitant]
  4. LASIX [Concomitant]
  5. ALTACE [Concomitant]
  6. PROZAC [Concomitant]
  7. SEROQUEL [Concomitant]
  8. ACTONEL [Concomitant]
  9. ALLEGRA [Concomitant]

REACTIONS (11)
  - ATRIOVENTRICULAR BLOCK COMPLETE [None]
  - CHEST PAIN [None]
  - CONSTIPATION [None]
  - DIZZINESS [None]
  - DYSPNOEA EXERTIONAL [None]
  - ELECTROCARDIOGRAM T WAVE ABNORMAL [None]
  - MENTAL STATUS CHANGES [None]
  - NAUSEA [None]
  - NODAL RHYTHM [None]
  - RENAL FAILURE ACUTE [None]
  - VOMITING [None]
